FAERS Safety Report 20232267 (Version 5)
Quarter: 2022Q3

REPORT INFORMATION
  Report Type: Other
  Country: AR (occurrence: AR)
  Receive Date: 20211227
  Receipt Date: 20220709
  Transmission Date: 20221027
  Serious: Yes (Other)
  Sender: FDA-Public Use
  Company Number: AR-002147023-PHHY2018AR060638

PATIENT
  Sex: Female

DRUGS (13)
  1. XOLAIR [Suspect]
     Active Substance: OMALIZUMAB
     Indication: Asthma
     Dosage: 4 DF (600 MG), QMO
     Route: 058
     Dates: start: 20111001
  2. XOLAIR [Suspect]
     Active Substance: OMALIZUMAB
     Route: 058
  3. CLONAZEPAM [Concomitant]
     Active Substance: CLONAZEPAM
     Indication: Sleep disorder
     Dosage: 0.25 OT, QD (IN THE MORNING)
     Route: 065
  4. LOTRIAL D [Concomitant]
     Indication: Hypertension
     Dosage: UNK
  5. BISOPROLOL [Concomitant]
     Active Substance: BISOPROLOL
     Indication: Hypertension
     Dosage: 5 MG
  6. CALCIUM [Concomitant]
     Active Substance: CALCIUM
     Indication: Bone disorder
     Dosage: UNK
  7. VENTOLIN [Concomitant]
     Active Substance: ALBUTEROL SULFATE
     Indication: Product used for unknown indication
     Dosage: (PUFF)
  8. VENTOLIN [Concomitant]
     Active Substance: ALBUTEROL SULFATE
     Dosage: DROP FOR NEBULIZATION
  9. MONTELUKAST [Concomitant]
     Active Substance: MONTELUKAST SODIUM
     Indication: Product used for unknown indication
     Dosage: (PUFF)
  10. ROSUVASTATIN [Concomitant]
     Active Substance: ROSUVASTATIN
     Indication: Blood cholesterol
     Dosage: 10 MG
  11. PANTOPRAZOLE [Concomitant]
     Active Substance: PANTOPRAZOLE
     Indication: Gastric disorder
     Dosage: UNK
  12. ATROVENT [Concomitant]
     Active Substance: IPRATROPIUM BROMIDE
     Indication: Product used for unknown indication
     Dosage: DROP FOR NEBULIZATION
  13. THEOPHYLLINE [Concomitant]
     Active Substance: THEOPHYLLINE
     Indication: Product used for unknown indication
     Dosage: UNK

REACTIONS (13)
  - Intentional self-injury [Unknown]
  - Pain of skin [Not Recovered/Not Resolved]
  - Skin abrasion [Unknown]
  - Skin haemorrhage [Unknown]
  - Pigmentation disorder [Unknown]
  - Tremor [Unknown]
  - Skin atrophy [Unknown]
  - Contusion [Unknown]
  - Haematoma [Not Recovered/Not Resolved]
  - Skin exfoliation [Recovering/Resolving]
  - Skin disorder [Not Recovered/Not Resolved]
  - Hyperaesthesia [Unknown]
  - Hyperaesthesia [Unknown]
